FAERS Safety Report 19768194 (Version 1)
Quarter: 2021Q3

REPORT INFORMATION
  Report Type: Spontaneous
  Country: NL (occurrence: NL)
  Receive Date: 20210830
  Receipt Date: 20210830
  Transmission Date: 20211014
  Serious: Yes (Hospitalization, Disabling)
  Sender: FDA-Public Use
  Company Number: NL-ELI_LILLY_AND_COMPANY-NL202108008626

PATIENT
  Age: 47 Year
  Sex: Female
  Weight: 85 kg

DRUGS (6)
  1. IMPROMEN [BROMPERIDOL] [Suspect]
     Active Substance: BROMPERIDOL
     Indication: PRODUCT USED FOR UNKNOWN INDICATION
     Dosage: UNK UNK, UNKNOWN
     Route: 065
     Dates: start: 1992
  2. HALDOL [Suspect]
     Active Substance: HALOPERIDOL
     Indication: MOOD SWINGS
     Dosage: UNK UNK, UNKNOWN
     Route: 065
     Dates: start: 1988
  3. RISPERDAL [Concomitant]
     Active Substance: RISPERIDONE
     Indication: PRODUCT USED FOR UNKNOWN INDICATION
     Dosage: UNK
  4. CISORDINOL [ZUCLOPENTHIXOL HYDROCHLORIDE] [Suspect]
     Active Substance: ZUCLOPENTHIXOL
     Indication: MOOD SWINGS
     Dosage: UNK UNK, UNKNOWN
     Route: 065
     Dates: start: 1992
  5. ZYPREXA [Suspect]
     Active Substance: OLANZAPINE
     Indication: MOOD SWINGS
     Dosage: UNK UNK, UNKNOWN
     Route: 065
     Dates: start: 1988
  6. ORAP [Suspect]
     Active Substance: PIMOZIDE
     Indication: MOOD SWINGS
     Dosage: UNK UNK, UNKNOWN
     Route: 065
     Dates: start: 1988

REACTIONS (3)
  - Deafness [Not Recovered/Not Resolved]
  - Off label use [Unknown]
  - Hair growth abnormal [Recovering/Resolving]

NARRATIVE: CASE EVENT DATE: 1988
